FAERS Safety Report 7425567-0 (Version None)
Quarter: 2011Q2

REPORT INFORMATION
  Report Type: 
  Country: None (occurrence: None)
  Receive Date: 20110420
  Receipt Date: 20110414
  Transmission Date: 20111010
  Serious: Yes (Other)
  Sender: FDA-Public Use
  Company Number: CA-PFIZER INC-2011082476

PATIENT
  Age: 67 Year
  Sex: Male

DRUGS (4)
  1. DIOVAN [Concomitant]
     Dosage: 60 MG, UNK
  2. NORVASC [Suspect]
     Dosage: 5 MG, UNK
     Dates: start: 20071201, end: 20100201
  3. NORVASC [Suspect]
     Dosage: 10 MG, UNK
     Dates: start: 20100201
  4. NEXIUM [Concomitant]
     Dosage: 40 MG, UNK

REACTIONS (1)
  - MACULAR DEGENERATION [None]
